FAERS Safety Report 8792371 (Version 1)
Quarter: 2012Q4

REPORT INFORMATION
  Report Type: 
  Country: US (occurrence: US)
  Receive Date: 20120918
  Receipt Date: 20120918
  Transmission Date: 20130627
  Serious: No
  Sender: FDA-Public Use
  Company Number: US-PFIZER INC-2012226914

PATIENT
  Age: 56 Year
  Sex: Female
  Weight: 227 kg

DRUGS (3)
  1. NEURONTIN [Suspect]
     Indication: NEUROPATHY PERIPHERAL
     Dosage: UNK
     Dates: start: 201201
  2. NEURONTIN [Suspect]
     Dosage: 1600 mg, 3x/day
     Route: 048
     Dates: start: 2012
  3. NEURONTIN [Suspect]
     Dosage: a lower dosage a day

REACTIONS (1)
  - Drug ineffective [Unknown]
